FAERS Safety Report 10157281 (Version 1)
Quarter: 2014Q2

REPORT INFORMATION
  Report Type: Spontaneous
  Country: US (occurrence: None)
  Receive Date: 20140501
  Receipt Date: 20140501
  Transmission Date: 20141212
  Serious: Yes (Hospitalization)
  Sender: FDA-Public Use
  Company Number: None

PATIENT
  Age: 74 Year
  Sex: Female

DRUGS (6)
  1. DABIGATRAN [Suspect]
     Indication: ATRIAL FIBRILLATION
     Route: 048
     Dates: start: 20120615, end: 20130828
  2. LEVOTHYROXINE [Concomitant]
  3. AMIODARONE [Concomitant]
  4. VITAMIN D [Concomitant]
  5. PRAMIPEXOLE [Concomitant]
  6. MIRTAZAPINE [Concomitant]

REACTIONS (6)
  - Dyspnoea [None]
  - Weight decreased [None]
  - Dizziness [None]
  - Haemoglobin decreased [None]
  - Gastrointestinal haemorrhage [None]
  - Dyspnoea exertional [None]
